FAERS Safety Report 14102910 (Version 1)
Quarter: 2017Q4

REPORT INFORMATION
  Report Type: Spontaneous
  Country: PT (occurrence: PT)
  Receive Date: 20171018
  Receipt Date: 20171018
  Transmission Date: 20180321
  Serious: Yes (Hospitalization)
  Sender: FDA-Public Use
  Company Number: PT-G+W LABS-GW2017PT000276

PATIENT

DRUGS (2)
  1. MESALAMINE. [Suspect]
     Active Substance: MESALAMINE
     Indication: PROCTITIS ULCERATIVE
     Dosage: 3 G, QD
     Route: 048
  2. MESALAMINE. [Suspect]
     Active Substance: MESALAMINE
     Dosage: 3 G, WEEK
     Route: 061

REACTIONS (3)
  - Blood creatine phosphokinase increased [None]
  - Myocarditis [Recovered/Resolved]
  - Eosinophilia [Recovered/Resolved]
